FAERS Safety Report 16466160 (Version 1)
Quarter: 2019Q2

REPORT INFORMATION
  Report Type: Spontaneous
  Country: US (occurrence: US)
  Receive Date: 20190621
  Receipt Date: 20190621
  Transmission Date: 20190711
  Serious: No
  Sender: FDA-Public Use
  Company Number: US-ACORDA-ACO_159256_2019

PATIENT
  Sex: Female
  Weight: 90.7 kg

DRUGS (3)
  1. INBRIJA [Suspect]
     Active Substance: LEVODOPA
     Indication: PARKINSON^S DISEASE
     Dosage: 84 MILLIGRAM, PRN
     Dates: start: 20190529, end: 201906
  2. SINEMET [Concomitant]
     Active Substance: CARBIDOPA\LEVODOPA
  3. INBRIJA [Suspect]
     Active Substance: LEVODOPA
     Dosage: 84 MILLIGRAM, UP TO 5 TIMES PER DAY AS NEEDED (PRN)
     Dates: start: 201906, end: 20190609

REACTIONS (4)
  - Foreign body in respiratory tract [Unknown]
  - Retching [Unknown]
  - Therapeutic product effect incomplete [Unknown]
  - Cough [Unknown]
